FAERS Safety Report 21217329 (Version 1)
Quarter: 2022Q3

REPORT INFORMATION
  Report Type: Spontaneous
  Country: US (occurrence: US)
  Receive Date: 20220816
  Receipt Date: 20220816
  Transmission Date: 20221027
  Serious: No
  Sender: FDA-Public Use
  Company Number: US-JNJFOC-20220811490

PATIENT
  Age: 9 Year
  Sex: Male

DRUGS (6)
  1. RISPERDAL [Suspect]
     Active Substance: RISPERIDONE
     Indication: Affective disorder
     Route: 048
  2. RISPERDAL [Suspect]
     Active Substance: RISPERIDONE
     Dosage: .25 MG ONCE DAILY
     Route: 048
     Dates: start: 20131106
  3. RISPERDAL [Suspect]
     Active Substance: RISPERIDONE
     Dosage: .25 MG ONCE DAILY AT BED TIME
     Route: 048
     Dates: start: 20140129
  4. RISPERDAL [Suspect]
     Active Substance: RISPERIDONE
     Dosage: .25 MG TWICE DAILY
     Route: 048
     Dates: start: 20170303
  5. RISPERDAL [Suspect]
     Active Substance: RISPERIDONE
     Dosage: .25 MG ONCE DAILY
     Route: 048
     Dates: start: 20170308, end: 20170311
  6. RISPERIDONE [Suspect]
     Active Substance: RISPERIDONE
     Indication: Product used for unknown indication
     Route: 065

REACTIONS (5)
  - Weight increased [Unknown]
  - Sedation [Unknown]
  - Blood prolactin increased [Unknown]
  - Gynaecomastia [Unknown]
  - Off label use [Unknown]

NARRATIVE: CASE EVENT DATE: 20170101
